FAERS Safety Report 4382844-8 (Version None)
Quarter: 2004Q2

REPORT INFORMATION
  Report Type: 
  Country: None (occurrence: None)
  Receive Date: 20040617
  Receipt Date: 20040608
  Transmission Date: 20050107
  Serious: Yes (Death)
  Sender: FDA-Public Use
  Company Number: US-JNJFOC-20040602312

PATIENT
  Age: 35 Year
  Sex: Male

DRUGS (4)
  1. DURAGESIC [Suspect]
     Indication: PAIN
     Dosage: 50 UG/HR, 1 IN 48 HOUR, TRANSDERMAL
     Route: 062
     Dates: start: 20030101, end: 20040120
  2. METHADONE (METHADONE) [Concomitant]
  3. BENZODIAZEPINE (BENZODIAZEPINE DERIVATIVES) [Concomitant]
  4. DIAZEPAM [Concomitant]

REACTIONS (1)
  - DRUG TOXICITY [None]
